FAERS Safety Report 23756673 (Version 1)
Quarter: 2024Q2

REPORT INFORMATION
  Report Type: Spontaneous
  Country: US (occurrence: US)
  Receive Date: 20240418
  Receipt Date: 20240418
  Transmission Date: 20240716
  Serious: Yes (Hospitalization)
  Sender: FDA-Public Use
  Company Number: US-HALEON-2168698

PATIENT
  Sex: Female

DRUGS (1)
  1. EXCEDRIN EXTRA STRENGTH [Suspect]
     Active Substance: ACETAMINOPHEN\ASPIRIN\CAFFEINE
     Indication: Headache
     Dosage: TIME INTERVAL: TOTAL
     Route: 048
     Dates: start: 202404, end: 202404

REACTIONS (3)
  - Gastric ulcer [Unknown]
  - Exposure during pregnancy [Unknown]
  - Abdominal pain upper [Unknown]
